FAERS Safety Report 8216748-7 (Version None)
Quarter: 2012Q1

REPORT INFORMATION
  Report Type: 
  Country: None (occurrence: None)
  Receive Date: 20120316
  Receipt Date: 20120312
  Transmission Date: 20120608
  Serious: Yes (Disabling)
  Sender: FDA-Public Use
  Company Number: IT-ROCHE-1048206

PATIENT
  Sex: Female

DRUGS (9)
  1. MABTHERA [Suspect]
     Indication: NODAL MARGINAL ZONE B-CELL LYMPHOMA STAGE IV
     Route: 042
     Dates: start: 20100416, end: 20111213
  2. DAUNORUBICIN HCL [Concomitant]
  3. LEVOFLOXACIN [Concomitant]
     Route: 048
  4. CYCLOPHOSPHAMIDE [Suspect]
     Indication: NODAL MARGINAL ZONE B-CELL LYMPHOMA STAGE IV
     Route: 042
     Dates: start: 20111018, end: 20120111
  5. ONCOVIN [Concomitant]
  6. SOLU-MEDROL [Concomitant]
     Dosage: FORM OF ADMIN TEXT 125MG/2MLVIAL
     Route: 042
  7. NAVOBAN [Concomitant]
     Dosage: FORMULATION STRENGTH 5MG/ 5 ML
     Route: 042
  8. TRIMETON [Concomitant]
     Route: 048
  9. ZEFFIX [Concomitant]
     Route: 048

REACTIONS (2)
  - HYPOACUSIS [None]
  - EAR PAIN [None]
